FAERS Safety Report 5076519-X (Version None)
Quarter: 2006Q3

REPORT INFORMATION
  Report Type: 
  Country: None (occurrence: None)
  Receive Date: 20060807
  Receipt Date: 20060725
  Transmission Date: 20061208
  Serious: Yes (Hospitalization)
  Sender: FDA-Public Use
  Company Number: 2006091726

PATIENT
  Age: 77 Year
  Sex: Female

DRUGS (2)
  1. CELEBREX [Suspect]
     Dosage: 200 MG (1 IN 1 D), ORAL
     Route: 048
     Dates: end: 20050310
  2. ACTONEL [Concomitant]

REACTIONS (1)
  - VARICOSE VEIN [None]
